FAERS Safety Report 6693324-9 (Version None)
Quarter: 2010Q2

REPORT INFORMATION
  Report Type: 
  Country: None (occurrence: None)
  Receive Date: 20100421
  Receipt Date: 20100421
  Transmission Date: 20101027
  Serious: Yes (Hospitalization, Other)
  Sender: FDA-Public Use
  Company Number: None

PATIENT
  Age: 55 Year
  Sex: Female
  Weight: 58.0604 kg

DRUGS (1)
  1. LITHIUM CARBONATE [Suspect]
     Indication: BIPOLAR DISORDER
     Dosage: 450 MG ER 1 X DAILY ORAL
     Route: 048
     Dates: start: 20100106, end: 20100111

REACTIONS (14)
  - CONFUSIONAL STATE [None]
  - DIZZINESS [None]
  - DYSARTHRIA [None]
  - DYSKINESIA [None]
  - FEELING ABNORMAL [None]
  - FOREIGN BODY [None]
  - HALLUCINATION, AUDITORY [None]
  - HYPERACUSIS [None]
  - HYPOAESTHESIA ORAL [None]
  - LETHARGY [None]
  - SOMNOLENCE [None]
  - TREMOR [None]
  - VERBIGERATION [None]
  - VISUAL IMPAIRMENT [None]
